FAERS Safety Report 7775244-1 (Version None)
Quarter: 2011Q3

REPORT INFORMATION
  Report Type: 
  Country: None (occurrence: None)
  Receive Date: 20110923
  Receipt Date: 20100803
  Transmission Date: 20111222
  Serious: No
  Sender: FDA-Public Use
  Company Number: US-BRISTOL-MYERS SQUIBB COMPANY-15222748

PATIENT
  Age: 31 Year
  Sex: Female

DRUGS (1)
  1. MEGACE [Suspect]
     Dosage: TAKEN FOR 2 DAYS

REACTIONS (1)
  - PREGNANCY [None]
